FAERS Safety Report 24957502 (Version 2)
Quarter: 2025Q1

REPORT INFORMATION
  Report Type: Report from Study
  Country: US (occurrence: US)
  Receive Date: 20250212
  Receipt Date: 20250219
  Transmission Date: 20250409
  Serious: Yes (Death)
  Sender: ABBVIE
  Company Number: US-ABBVIE-5999459

PATIENT
  Age: 69 Year
  Sex: Female
  Weight: 72 kg

DRUGS (5)
  1. VENCLEXTA [Suspect]
     Active Substance: VENETOCLAX
     Indication: Acute myeloid leukaemia (in remission)
     Dosage: TAKE 100MG BY MOUTH DAILY FOR 14 DAYS OUT OF 28 DAY CYCLE
     Route: 048
  2. VENCLEXTA [Suspect]
     Active Substance: VENETOCLAX
     Indication: Acute myeloid leukaemia (in remission)
     Dosage: CYCLE 2: TAKE 200MG BY MOUTH DAILY FOR 14 DAYS OUT OF?28 DAY CYCLE
     Route: 048
  3. VENCLEXTA [Suspect]
     Active Substance: VENETOCLAX
     Indication: Acute myeloid leukaemia (in remission)
     Dosage: CYCLE 3: TAKE 400MG BY MOUTH FOR 14 DAYS OUT OF 28 DAY CYCLE
     Route: 048
  4. VENCLEXTA [Suspect]
     Active Substance: VENETOCLAX
     Indication: Acute myeloid leukaemia (in remission)
     Dosage: FOR SEVEN DAYS
     Route: 048
     Dates: start: 202410, end: 202501
  5. INQOVI [Concomitant]
     Active Substance: CEDAZURIDINE\DECITABINE
     Indication: Myelodysplastic syndrome
     Route: 048
     Dates: start: 202412

REACTIONS (4)
  - Sepsis [Fatal]
  - Visual impairment [Unknown]
  - Acute respiratory failure [Fatal]
  - Cholecystitis [Fatal]
